FAERS Safety Report 7111093-5 (Version None)
Quarter: 2010Q4

REPORT INFORMATION
  Report Type: 
  Country: None (occurrence: None)
  Receive Date: 20101118
  Receipt Date: 20101110
  Transmission Date: 20110411
  Serious: No
  Sender: FDA-Public Use
  Company Number: US-B.I. PHARMACEUTICALS,INC./RIDGEFIELD-2010-BP-12021BP

PATIENT
  Sex: Female

DRUGS (7)
  1. SPIRIVA [Suspect]
     Indication: BRONCHIAL DISORDER
     Dosage: 18 MCG
     Route: 055
     Dates: start: 20100401
  2. SPIRIVA [Suspect]
     Indication: PNEUMONIA
  3. METOPROLOL [Concomitant]
     Indication: HYPERTENSION
  4. DIOVAN [Concomitant]
     Indication: HYPERTENSION
  5. ATIVAN [Concomitant]
     Indication: DEPRESSION
  6. ZOLOFT [Concomitant]
     Indication: DEPRESSION
  7. ASPIRIN [Concomitant]
     Indication: PROPHYLAXIS

REACTIONS (1)
  - DYSPNOEA [None]
